FAERS Safety Report 8366388-4 (Version None)
Quarter: 2012Q2

REPORT INFORMATION
  Report Type: 
  Country: None (occurrence: None)
  Receive Date: 20120517
  Receipt Date: 20120514
  Transmission Date: 20120825
  Serious: Yes (Other)
  Sender: FDA-Public Use
  Company Number: VE-PFIZER INC-2012118103

PATIENT
  Sex: Male

DRUGS (1)
  1. CADUET [Suspect]

REACTIONS (1)
  - ANGINA UNSTABLE [None]
